FAERS Safety Report 9068942 (Version 1)
Quarter: 2013Q1

REPORT INFORMATION
  Report Type: Spontaneous
  Country: FR (occurrence: None)
  Receive Date: 20130122
  Receipt Date: 20130122
  Transmission Date: 20140127
  Serious: Yes (Hospitalization)
  Sender: FDA-Public Use
  Company Number: DSM-2013-00071

PATIENT
  Age: 79 Year
  Sex: Male

DRUGS (5)
  1. ALTEIS DUO [Suspect]
     Indication: HYPERTENSION
     Route: 048
     Dates: end: 20111012
  2. LERCANDIPINE [Concomitant]
  3. ENDOTELON (VITIS VINIFERA EXTRACT)(VITIS VINIFERA EXTRACT) [Concomitant]
  4. XYZALL (LEVOCETIRIZINE DIHYDROCHLORIDE)(LEVOCETIRIZINE DIHYDROCHLORIDE) [Concomitant]
  5. PIASCLEDINE (PIAS)(PIAS) [Concomitant]

REACTIONS (9)
  - Diarrhoea [None]
  - Weight decreased [None]
  - Renal failure [None]
  - Intestinal villi atrophy [None]
  - Hypokalaemia [None]
  - Fatigue [None]
  - Dehydration [None]
  - Duodenal ulcer [None]
  - Large intestine polyp [None]
